FAERS Safety Report 9083544 (Version 2)
Quarter: 2013Q1

REPORT INFORMATION
  Report Type: Spontaneous
  Country: US (occurrence: US)
  Receive Date: 20130130
  Receipt Date: 20130301
  Transmission Date: 20140127
  Serious: Yes (Hospitalization)
  Sender: FDA-Public Use
  Company Number: US-009507513-1301USA012534

PATIENT
  Age: 20 Year
  Sex: Male

DRUGS (1)
  1. SAPHRIS [Suspect]
     Indication: BIPOLAR DISORDER
     Dosage: 5 MG, QD, BLACK CHERRY
     Route: 060

REACTIONS (4)
  - Neuroleptic malignant syndrome [Recovered/Resolved]
  - Tremor [Recovered/Resolved]
  - Trismus [Recovered/Resolved]
  - Inappropriate schedule of drug administration [Unknown]
